FAERS Safety Report 20983484 (Version 1)
Quarter: 2022Q2

REPORT INFORMATION
  Report Type: Spontaneous
  Country: FR (occurrence: FR)
  Receive Date: 20220620
  Receipt Date: 20220620
  Transmission Date: 20220721
  Serious: Yes (Hospitalization, Other)
  Sender: FDA-Public Use
  Company Number: FR-CIPHER-2022-FR-000005

PATIENT
  Age: 18 Year
  Sex: Male

DRUGS (5)
  1. TRAMADOL HYDROCHLORIDE [Suspect]
     Active Substance: TRAMADOL HYDROCHLORIDE
     Indication: Headache
  2. EPINEPHRINE [Concomitant]
     Active Substance: EPINEPHRINE
  3. NOREPINEPHRINE [Concomitant]
     Active Substance: NOREPINEPHRINE
     Dosage: 3MG/HR
  4. hypertonic glucose [Concomitant]
     Indication: Hypoglycaemia
  5. DEXTROSE [Concomitant]
     Active Substance: DEXTROSE
     Indication: Hypoglycaemia

REACTIONS (17)
  - Drug level increased [Recovered/Resolved]
  - Drug metabolite level high [Recovered/Resolved]
  - Multiple organ dysfunction syndrome [Unknown]
  - Thrombocytopenia [Recovered/Resolved]
  - Hepatocellular injury [Recovered/Resolved]
  - Mydriasis [Recovered/Resolved]
  - Corneal reflex decreased [Recovered/Resolved]
  - Areflexia [Recovered/Resolved]
  - Pneumonia aspiration [Recovered/Resolved]
  - Cardiac arrest [Recovered/Resolved]
  - Hypoglycaemia [Recovered/Resolved]
  - Overdose [Recovered/Resolved]
  - Lactic acidosis [Recovered/Resolved]
  - Renal failure [Recovered/Resolved]
  - Rhabdomyolysis [Recovered/Resolved]
  - Cell death [Recovered/Resolved]
  - Hepatic failure [Recovered/Resolved]
